FAERS Safety Report 17428463 (Version 2)
Quarter: 2020Q1

REPORT INFORMATION
  Report Type: Report from Study
  Country: FR (occurrence: FR)
  Receive Date: 20200217
  Receipt Date: 20200219
  Transmission Date: 20200409
  Serious: Yes (Other)
  Sender: FDA-Public Use
  Company Number: FR-ALLERGAN-2007033US

PATIENT
  Sex: Male
  Weight: 78 kg

DRUGS (3)
  1. COLIMYCINE [Concomitant]
     Indication: ENDOCARDITIS
     Dosage: UNK
     Dates: start: 20191002
  2. FOSFOMYCIN [Concomitant]
     Active Substance: FOSFOMYCIN
     Indication: ENDOCARDITIS
     Dosage: UNK
     Dates: start: 20191002
  3. CEFTAZIDIME;AVIBACTAM - BP [Suspect]
     Active Substance: AVIBACTAM SODIUM\CEFTAZIDIME
     Indication: LUNG DISORDER
     Dosage: 6 G, QD
     Route: 065
     Dates: start: 20191002

REACTIONS (2)
  - Overdose [Recovered/Resolved]
  - Seizure [Recovered/Resolved]

NARRATIVE: CASE EVENT DATE: 20191008
